FAERS Safety Report 5616156-9 (Version None)
Quarter: 2008Q1

REPORT INFORMATION
  Report Type: 
  Country: None (occurrence: None)
  Receive Date: 20080206
  Receipt Date: 20080129
  Transmission Date: 20080703
  Serious: Yes (Other)
  Sender: FDA-Public Use
  Company Number: US-PFIZER INC-2008009459

PATIENT
  Sex: Female

DRUGS (1)
  1. CHANTIX [Suspect]
     Indication: SMOKING CESSATION THERAPY

REACTIONS (6)
  - ABDOMINAL DISTENSION [None]
  - COLD SWEAT [None]
  - LUNG DISORDER [None]
  - NAUSEA [None]
  - PNEUMONIA [None]
  - VOMITING [None]
